FAERS Safety Report 6012423-8 (Version None)
Quarter: 2008Q4

REPORT INFORMATION
  Report Type: 
  Country: None (occurrence: None)
  Receive Date: 20081218
  Receipt Date: 20081208
  Transmission Date: 20090506
  Serious: Yes (Hospitalization, Other)
  Sender: FDA-Public Use
  Company Number: US-ELI_LILLY_AND_COMPANY-US200812002748

PATIENT
  Sex: Female

DRUGS (1)
  1. FORTEO [Suspect]
     Dates: start: 20080401

REACTIONS (4)
  - ASTHENIA [None]
  - COLITIS MICROSCOPIC [None]
  - HYPOTENSION [None]
  - RENAL FAILURE [None]
